FAERS Safety Report 4608637-1 (Version None)
Quarter: 2005Q1

REPORT INFORMATION
  Report Type: 
  Country: None (occurrence: None)
  Receive Date: 20050315
  Receipt Date: 20050215
  Transmission Date: 20050727
  Serious: Yes (Life-Threatening, Hospitalization)
  Sender: FDA-Public Use
  Company Number: DE-AMGEN-UK114439

PATIENT
  Sex: Female
  Weight: 104 kg

DRUGS (19)
  1. ARANESP [Suspect]
     Indication: DIALYSIS
     Route: 042
     Dates: start: 20040513
  2. VITARENAL [Concomitant]
     Route: 048
     Dates: start: 20030909
  3. BELOC ZOK [Concomitant]
     Route: 048
  4. LANTUS [Concomitant]
     Route: 065
  5. COVERSUM [Concomitant]
     Route: 048
  6. CYNT [Concomitant]
     Route: 048
  7. FERRLECIT FOR INJECTION [Concomitant]
     Route: 042
  8. VITAMIN C [Concomitant]
     Route: 065
  9. ASPIRIN [Concomitant]
     Route: 048
     Dates: start: 20031014
  10. METAMIZOLE SODIUM [Concomitant]
     Route: 065
  11. EZETIMIBE [Concomitant]
     Route: 065
  12. SIMVASTATIN [Concomitant]
     Route: 065
  13. BISOPROLOL FUMARATE [Concomitant]
     Route: 048
     Dates: start: 20040603
  14. CALCITRIOL [Concomitant]
     Route: 048
     Dates: start: 20040401
  15. CALCIUM ACETATE [Concomitant]
     Route: 048
     Dates: start: 20040417
  16. RAMIPRIL [Concomitant]
     Dates: start: 20030508
  17. LERCANIDIPINE HYDROCHLORIDE [Concomitant]
     Route: 048
     Dates: start: 20031018
  18. CATAPRES [Concomitant]
     Route: 048
     Dates: start: 20030508
  19. ANTIHYPERTENSIVES [Concomitant]
     Route: 048

REACTIONS (7)
  - CEREBROVASCULAR ACCIDENT [None]
  - DIABETIC RETINOPATHY [None]
  - EPILEPSY [None]
  - HEMIPARESIS [None]
  - HYPERGLYCAEMIA [None]
  - RETINOPATHY HYPERTENSIVE [None]
  - URINARY TRACT INFECTION [None]
